FAERS Safety Report 13572238 (Version 1)
Quarter: 2017Q2

REPORT INFORMATION
  Report Type: Spontaneous
  Country: US (occurrence: US)
  Receive Date: 20170523
  Receipt Date: 20170523
  Transmission Date: 20170830
  Serious: Yes (Life-Threatening)
  Sender: FDA-Public Use
  Company Number: None

PATIENT
  Sex: Female
  Weight: 55.84 kg

DRUGS (1)
  1. LAMOTRIGINE 150MG AM + 225MG PM [Suspect]
     Active Substance: LAMOTRIGINE

REACTIONS (1)
  - Seizure [None]

NARRATIVE: CASE EVENT DATE: 2008
